FAERS Safety Report 20795820 (Version 3)
Quarter: 2022Q2

REPORT INFORMATION
  Report Type: Report from Study
  Country: CO (occurrence: CO)
  Receive Date: 20220506
  Receipt Date: 20220513
  Transmission Date: 20220721
  Serious: Yes (Life-Threatening, Hospitalization)
  Sender: FDA-Public Use
  Company Number: CO-NOVARTISPH-NVSC2022CO102066

PATIENT
  Sex: Male
  Weight: 101 kg

DRUGS (3)
  1. TASIGNA [Suspect]
     Active Substance: NILOTINIB
     Indication: Chronic myeloid leukaemia
     Dosage: 300 MG, Q12H
     Route: 048
     Dates: start: 20210310
  2. TASIGNA [Suspect]
     Active Substance: NILOTINIB
     Dosage: UNK
     Route: 048
  3. VALSARTAN [Concomitant]
     Active Substance: VALSARTAN
     Indication: Hypertension
     Dosage: UNK UNK, QD (START SINCE 2 MONTHS AGO)
     Route: 048

REACTIONS (6)
  - Near death experience [Unknown]
  - Illness [Unknown]
  - Ill-defined disorder [Unknown]
  - Pancreatitis [Unknown]
  - Abdominal distension [Unknown]
  - Blood glucose increased [Unknown]
